FAERS Safety Report 4278007-7 (Version None)
Quarter: 2004Q1

REPORT INFORMATION
  Report Type: 
  Country: None (occurrence: None)
  Receive Date: 20040121
  Receipt Date: 20031107
  Transmission Date: 20041129
  Serious: Yes (Life-Threatening)
  Sender: FDA-Public Use
  Company Number: RB-219-2003

PATIENT
  Age: 17 Year
  Sex: Female

DRUGS (2)
  1. BUPRENORPHINE HYDROCHLORIDE [Suspect]
     Indication: DRUG DEPENDENCE
     Dosage: 8 MG SC
     Route: 058
     Dates: start: 20030908, end: 20030912
  2. HEROIN [Concomitant]

REACTIONS (5)
  - CHEST PAIN [None]
  - DYSPNOEA [None]
  - HEADACHE [None]
  - MEDICATION ERROR [None]
  - TONGUE OEDEMA [None]
